FAERS Safety Report 16377351 (Version 2)
Quarter: 2019Q2

REPORT INFORMATION
  Report Type: Spontaneous
  Country: CH (occurrence: CH)
  Receive Date: 20190531
  Receipt Date: 20190604
  Transmission Date: 20190711
  Serious: Yes (Life-Threatening, Hospitalization, Other)
  Sender: FDA-Public Use
  Company Number: CH-PFIZER INC-2019229254

PATIENT
  Age: 68 Year
  Sex: Female

DRUGS (15)
  1. ALDACTONE [Suspect]
     Active Substance: SPIRONOLACTONE
     Dosage: 25 MG, 1X/DAY
     Route: 048
     Dates: start: 20190517
  2. LUVIT D3 [Concomitant]
     Active Substance: CHOLECALCIFEROL
     Dates: start: 20190323, end: 20190515
  3. ALDACTONE [Suspect]
     Active Substance: SPIRONOLACTONE
     Dosage: 25 MG, 1X/DAY
     Route: 048
     Dates: start: 20190327, end: 20190515
  4. CO AMOXICILLIN [Suspect]
     Active Substance: AMOXICILLIN\CLAVULANATE POTASSIUM
     Dates: start: 20190322, end: 20190408
  5. LISINOPRIL. [Suspect]
     Active Substance: LISINOPRIL
     Dosage: 10 MG, 1X/DAY
     Route: 048
     Dates: start: 20190507, end: 20190515
  6. LISINOPRIL. [Suspect]
     Active Substance: LISINOPRIL
     Dosage: 10 MG, DAILY
     Route: 048
     Dates: start: 20190517
  7. DIGOXINE [Concomitant]
     Active Substance: DIGOXIN
     Dosage: UNK
     Dates: start: 20190517
  8. AMOXICILLIN. [Suspect]
     Active Substance: AMOXICILLIN
     Dosage: UNK
     Dates: start: 20190409, end: 20190507
  9. DIGOXINE [Concomitant]
     Active Substance: DIGOXIN
     Dosage: UNK
     Dates: start: 2015, end: 20190515
  10. SINTROM [Concomitant]
     Active Substance: ACENOCOUMAROL
     Dosage: AS NECESSARY
     Dates: start: 2015
  11. ESOMEPRAZOLE MAGNESIUM. [Suspect]
     Active Substance: ESOMEPRAZOLE MAGNESIUM
     Dosage: 20 MG, 1X/DAY
     Route: 048
     Dates: start: 20190322, end: 20190515
  12. CEFTRIAXONE. [Suspect]
     Active Substance: CEFTRIAXONE
     Dates: start: 20190409, end: 20190507
  13. LACRYCON [HYALURONATE SODIUM;POLYACRYLATE SODIUM] [Concomitant]
     Dosage: AS NECESSARY
  14. CORDARONE [Suspect]
     Active Substance: AMIODARONE HYDROCHLORIDE
     Dosage: 200 MG, 1X/DAY
     Route: 048
     Dates: start: 20190403, end: 20190515
  15. EUTHYROX [Concomitant]
     Active Substance: LEVOTHYROXINE SODIUM
     Dates: start: 2015

REACTIONS (1)
  - Agranulocytosis [Recovered/Resolved]

NARRATIVE: CASE EVENT DATE: 20190515
